FAERS Safety Report 11191747 (Version 1)
Quarter: 2015Q2

REPORT INFORMATION
  Report Type: Report from Study
  Country: US (occurrence: None)
  Receive Date: 20150603
  Receipt Date: 20150603
  Transmission Date: 20150821
  Serious: No
  Sender: FDA-Public Use
  Company Number: 2015TASUS000731

PATIENT
  Age: 73 Year
  Sex: Female
  Weight: 71.2 kg

DRUGS (14)
  1. OSTEO BI-FLEX (CHONDROITIN SULFATE, GLUCOSAMINE HYDROCHLORIDE) [Concomitant]
  2. EFFEXOR [Concomitant]
     Active Substance: VENLAFAXINE HYDROCHLORIDE
  3. VERAPAMIL (VERAPAMIL HYDROCHLORIDE) (VERAPAMIL HYDROCHLORIDE) [Concomitant]
     Active Substance: VERAPAMIL HYDROCHLORIDE
  4. OMEPRAZOLE (OMEPRAZOLE) [Concomitant]
     Active Substance: OMEPRAZOLE
  5. FLUTICASONE PROPIONATE (FLUTICASONE PROPIONATE) (FLUTICASONE PROPIONATE) [Concomitant]
     Active Substance: FLUTICASONE PROPIONATE
  6. ASPIRIN (ACETYLSALICYLIC ACID) [Concomitant]
     Active Substance: ASPIRIN
  7. NORTRIPTYLINE (NORTRIPTYLINE HYDROCHLORIDE) [Concomitant]
  8. TRAMADOL (TRAMADOL HYDROCHLORIDE) [Concomitant]
     Active Substance: TRAMADOL HYDROCHLORIDE
  9. HETLIOZ [Suspect]
     Active Substance: TASIMELTEON
     Indication: CIRCADIAN RHYTHM SLEEP DISORDER
     Route: 048
     Dates: start: 20150203, end: 20150407
  10. SIMVASTATIN (SIMVASTATIN) [Concomitant]
     Active Substance: SIMVASTATIN
  11. GABAPENTIN (GABAPENTIN) [Concomitant]
     Active Substance: GABAPENTIN
  12. TAMOXIFEN (TAMOXIFEN CITRATE) [Concomitant]
  13. CALCIUM CARBONATE (CALCIUM CARBONATE) [Concomitant]
  14. DOCUSATE SODIUM (DOCUSATE SODIUM) [Concomitant]
     Active Substance: DOCUSATE SODIUM

REACTIONS (3)
  - Drug ineffective [None]
  - Incontinence [None]
  - Incorrect drug administration duration [None]

NARRATIVE: CASE EVENT DATE: 20150203
